FAERS Safety Report 6203535-4 (Version None)
Quarter: 2009Q2

REPORT INFORMATION
  Report Type: 
  Country: None (occurrence: None)
  Receive Date: 20090527
  Receipt Date: 20090520
  Transmission Date: 20091009
  Serious: Yes (Other)
  Sender: FDA-Public Use
  Company Number: AT-BAYER-200921503GPV

PATIENT
  Age: 66 Year
  Sex: Male

DRUGS (11)
  1. SORAFENIB [Suspect]
     Indication: METASTATIC RENAL CELL CARCINOMA
     Dates: start: 20060101, end: 20060101
  2. SORAFENIB [Suspect]
     Dates: start: 20060101, end: 20070801
  3. SORAFENIB [Suspect]
     Dates: start: 20060101, end: 20060101
  4. PANTOPRAZOLE SODIUM [Concomitant]
     Indication: CHRONIC OBSTRUCTIVE PULMONARY DISEASE
  5. ACARBOSE [Concomitant]
     Indication: TYPE 2 DIABETES MELLITUS
  6. THEOPHYLLINE [Concomitant]
     Indication: CHRONIC OBSTRUCTIVE PULMONARY DISEASE
  7. QUINAPRIL [Concomitant]
     Indication: HYPERTENSION
  8. VERAPAMIL [Concomitant]
     Indication: HYPERTENSION
  9. GLICLAZIDE [Concomitant]
     Indication: TYPE 2 DIABETES MELLITUS
  10. RILMENIDINE [Concomitant]
     Indication: HYPERTENSION
  11. TIOTROPIUM [Concomitant]
     Indication: CHRONIC OBSTRUCTIVE PULMONARY DISEASE

REACTIONS (6)
  - ANGIOEDEMA [None]
  - FOLLICULITIS [None]
  - HYPERKERATOSIS [None]
  - PALMAR-PLANTAR ERYTHRODYSAESTHESIA SYNDROME [None]
  - RASH [None]
  - XEROSIS [None]
